FAERS Safety Report 6241560-8 (Version None)
Quarter: 2009Q2

REPORT INFORMATION
  Report Type: 
  Country: None (occurrence: None)
  Receive Date: 20090623
  Receipt Date: 20040813
  Transmission Date: 20091009
  Serious: Yes (Hospitalization)
  Sender: FDA-Public Use
  Company Number: ES-ROCHE-357336

PATIENT
  Sex: Female
  Weight: 57 kg

DRUGS (21)
  1. DACLIZUMAB [Suspect]
     Route: 042
  2. MYCOPHENOLATE MOFETIL [Suspect]
     Route: 048
     Dates: start: 20040125, end: 20040125
  3. MYCOPHENOLATE MOFETIL [Suspect]
     Route: 048
     Dates: start: 20040126, end: 20040126
  4. MYCOPHENOLATE MOFETIL [Suspect]
     Route: 048
     Dates: start: 20040127, end: 20050720
  5. MYCOPHENOLATE MOFETIL [Suspect]
     Route: 048
     Dates: start: 20050721, end: 20060506
  6. MYCOPHENOLIC ACID [Suspect]
     Route: 048
     Dates: start: 20060506
  7. CYCLOSPORINE [Suspect]
     Dosage: DRUG: CICLOSPORINE
     Route: 048
     Dates: start: 20040125, end: 20040318
  8. CYCLOSPORINE [Suspect]
     Route: 048
     Dates: start: 20041022
  9. CYCLOSPORINE [Suspect]
     Dosage: DRUG: CICLOSPORINE
     Route: 048
     Dates: start: 20040319, end: 20040429
  10. CYCLOSPORINE [Suspect]
     Route: 048
     Dates: start: 20040430, end: 20041021
  11. PREDNISONE [Suspect]
     Route: 042
     Dates: start: 20040125, end: 20040125
  12. PREDNISONE [Suspect]
     Route: 042
     Dates: start: 20040126, end: 20040127
  13. PREDNISONE [Suspect]
     Dosage: FOR 28 JAN 04, FORMULATION/ROUTE PROVIDED: TABLET/IV. THIS IS UNLIKELY, SO CAPTURED AS ORAL
     Route: 048
     Dates: start: 20040128, end: 20040210
  14. PREDNISONE [Suspect]
     Route: 048
     Dates: start: 20040319, end: 20040802
  15. PREDNISONE [Suspect]
     Route: 048
     Dates: start: 20040803, end: 20060129
  16. PREDNISONE [Suspect]
     Route: 048
     Dates: start: 20060130, end: 20060505
  17. PREDNISONE [Suspect]
     Route: 048
     Dates: start: 20060506, end: 20061103
  18. PREDNISONE [Suspect]
     Route: 048
     Dates: start: 20040211, end: 20040318
  19. AZACTAM [Concomitant]
     Route: 042
     Dates: start: 20040125, end: 20040126
  20. AMLODIPINE [Concomitant]
     Route: 048
     Dates: start: 20040127
  21. CIPROFLOXACIN HCL [Concomitant]
     Route: 048
     Dates: start: 20040126, end: 20040128

REACTIONS (2)
  - COMPLICATIONS OF TRANSPLANTED KIDNEY [None]
  - VESICAL FISTULA [None]
